FAERS Safety Report 21000846 (Version 1)
Quarter: 2022Q2

REPORT INFORMATION
  Report Type: Spontaneous
  Country: NO (occurrence: NO)
  Receive Date: 20220623
  Receipt Date: 20220623
  Transmission Date: 20220720
  Serious: Yes (Hospitalization)
  Sender: FDA-Public Use
  Company Number: None

PATIENT
  Age: 54 Year
  Sex: Female

DRUGS (1)
  1. SAXENDA [Suspect]
     Active Substance: LIRAGLUTIDE
     Indication: Product used for unknown indication
     Dosage: 6 MG
     Route: 058
     Dates: start: 202109, end: 202205

REACTIONS (7)
  - Gallbladder rupture [Recovered/Resolved with Sequelae]
  - Cholecystectomy [Recovered/Resolved with Sequelae]
  - Gallbladder operation [Recovered/Resolved with Sequelae]
  - Cholelithiasis [Recovered/Resolved with Sequelae]
  - Pain [Recovered/Resolved with Sequelae]
  - Cholelithotomy [Recovered/Resolved with Sequelae]
  - Cholecystitis [Recovered/Resolved with Sequelae]

NARRATIVE: CASE EVENT DATE: 20220401
